FAERS Safety Report 7522180-1 (Version None)
Quarter: 2011Q2

REPORT INFORMATION
  Report Type: 
  Country: None (occurrence: None)
  Receive Date: 20110603
  Receipt Date: 20110531
  Transmission Date: 20111010
  Serious: Yes (Death, Life-Threatening, Hospitalization)
  Sender: FDA-Public Use
  Company Number: JP-SANOFI-AVENTIS-2011SA032661

PATIENT
  Age: 72 Year
  Sex: Female
  Weight: 39.8 kg

DRUGS (2)
  1. TAXOTERE [Suspect]
     Indication: NASAL CAVITY CANCER
     Route: 041
     Dates: start: 20110404, end: 20110425
  2. CISPLATIN [Suspect]
     Indication: NASAL CAVITY CANCER
     Dosage: 5 TIMES A WEEK
     Route: 041
     Dates: start: 20110404, end: 20110426

REACTIONS (12)
  - WHITE BLOOD CELL COUNT DECREASED [None]
  - PYREXIA [None]
  - HEPATIC FUNCTION ABNORMAL [None]
  - PRURITUS [None]
  - JAUNDICE [None]
  - PURPURA [None]
  - ASCITES [None]
  - ASTHENIA [None]
  - DISSEMINATED INTRAVASCULAR COAGULATION [None]
  - PANCYTOPENIA [None]
  - RED BLOOD CELL COUNT DECREASED [None]
  - PLATELET COUNT DECREASED [None]
